FAERS Safety Report 5392347-X (Version None)
Quarter: 2007Q3

REPORT INFORMATION
  Report Type: 
  Country: None (occurrence: None)
  Receive Date: 20070720
  Receipt Date: 20070713
  Transmission Date: 20080115
  Serious: Yes (Hospitalization)
  Sender: FDA-Public Use
  Company Number: ES-ASTRAZENECA-2007AC01316

PATIENT
  Age: 35 Year
  Sex: Female

DRUGS (2)
  1. SEROQUEL [Suspect]
     Indication: SCHIZOPHRENIA
     Route: 048
     Dates: end: 20070421
  2. CLOPIXOL [Suspect]
     Indication: SCHIZOPHRENIA
     Route: 048
     Dates: end: 20070421

REACTIONS (2)
  - EXTRAPYRAMIDAL DISORDER [None]
  - HYPERPROLACTINAEMIA [None]
